FAERS Safety Report 25589659 (Version 1)
Quarter: 2025Q3

REPORT INFORMATION
  Report Type: Spontaneous
  Country: US (occurrence: US)
  Receive Date: 20250722
  Receipt Date: 20250722
  Transmission Date: 20251021
  Serious: No
  Sender: MACLEODS
  Company Number: US-MACLEODS PHARMA-MAC2025054088

PATIENT

DRUGS (1)
  1. LEVOTHYROXINE [Suspect]
     Active Substance: LEVOTHYROXINE
     Indication: Hypothyroidism
     Dosage: RX NUMBER: 1505830
     Route: 048
     Dates: start: 20250619

REACTIONS (3)
  - Product solubility abnormal [Unknown]
  - Product size issue [Unknown]
  - Palpitations [Not Recovered/Not Resolved]
